FAERS Safety Report 10786337 (Version 1)
Quarter: 2015Q1

REPORT INFORMATION
  Report Type: Spontaneous
  Country: US (occurrence: US)
  Receive Date: 20150211
  Receipt Date: 20150211
  Transmission Date: 20150721
  Serious: Yes (Hospitalization)
  Sender: FDA-Public Use
  Company Number: US-ASTRAZENECA-2015SE11483

PATIENT
  Age: 57 Day
  Sex: Female

DRUGS (1)
  1. SYNAGIS [Suspect]
     Active Substance: PALIVIZUMAB
     Indication: PREMATURE BABY
     Dosage: 100MG/ML; 15MG/KG EVERY MONTH
     Route: 030
     Dates: start: 20141211, end: 20150108

REACTIONS (1)
  - Corona virus infection [Recovered/Resolved]

NARRATIVE: CASE EVENT DATE: 20150110
